FAERS Safety Report 14723171 (Version 1)
Quarter: 2018Q2

REPORT INFORMATION
  Report Type: Report from Study
  Country: US (occurrence: US)
  Receive Date: 20180405
  Receipt Date: 20180405
  Transmission Date: 20180711
  Serious: Yes (Disabling, Other)
  Sender: FDA-Public Use
  Company Number: US-ASTRAZENECA-2017SE15809

PATIENT
  Sex: Female
  Weight: 116.1 kg

DRUGS (11)
  1. LYNPARZA [Suspect]
     Active Substance: OLAPARIB
     Indication: OVARIAN CANCER
     Route: 048
     Dates: start: 20170124, end: 201707
  2. DIPHENHYDRAMINE. [Concomitant]
     Active Substance: DIPHENHYDRAMINE
     Route: 048
  3. PROCHLORPERAZINE. [Concomitant]
     Active Substance: PROCHLORPERAZINE
     Dosage: 10.0MG UNKNOWN
     Route: 048
  4. ZOLPIDEM [Concomitant]
     Active Substance: ZOLPIDEM\ZOLPIDEM TARTRATE
     Route: 048
  5. LYNPARZA [Suspect]
     Active Substance: OLAPARIB
     Indication: OVARIAN CANCER
     Route: 048
     Dates: start: 20170201
  6. IBUPROFEN. [Concomitant]
     Active Substance: IBUPROFEN
     Dosage: 600.0MG AS REQUIRED
     Route: 048
  7. SERTRALINE [Concomitant]
     Active Substance: SERTRALINE HYDROCHLORIDE
     Route: 048
  8. LYNPARZA [Suspect]
     Active Substance: OLAPARIB
     Indication: OVARIAN CANCER
     Route: 048
  9. OMEPRAZOLE. [Concomitant]
     Active Substance: OMEPRAZOLE
     Route: 048
  10. ONDANSETRON [Concomitant]
     Active Substance: ONDANSETRON
  11. OXYCODONE [Concomitant]
     Active Substance: OXYCODONE
     Route: 048

REACTIONS (30)
  - Mental status changes [Recovered/Resolved]
  - Fatigue [Not Recovered/Not Resolved]
  - Ear infection [Not Recovered/Not Resolved]
  - Abdominal pain [Unknown]
  - Spleen disorder [Unknown]
  - Infection [Unknown]
  - Confusional state [Recovered/Resolved]
  - Nasopharyngitis [Not Recovered/Not Resolved]
  - Constipation [Not Recovered/Not Resolved]
  - Glossitis [Unknown]
  - Urinary tract infection [Unknown]
  - Gait disturbance [Unknown]
  - Metastases to pancreas [Unknown]
  - Memory impairment [Unknown]
  - Chest discomfort [Not Recovered/Not Resolved]
  - Neuropathy peripheral [Unknown]
  - Nausea [Not Recovered/Not Resolved]
  - Malignant neoplasm progression [Not Recovered/Not Resolved]
  - Hepatic steatosis [Unknown]
  - Oral discomfort [Unknown]
  - Oral pain [Not Recovered/Not Resolved]
  - White blood cell count increased [Unknown]
  - Oliguria [Not Recovered/Not Resolved]
  - Chronic gastritis [Unknown]
  - Decreased appetite [Unknown]
  - Disturbance in attention [Unknown]
  - Device related infection [Unknown]
  - Stomatitis [Unknown]
  - Fall [Unknown]
  - Sinusitis [Not Recovered/Not Resolved]
